FAERS Safety Report 12308022 (Version 1)
Quarter: 2016Q2

REPORT INFORMATION
  Report Type: Spontaneous
  Country: US (occurrence: US)
  Receive Date: 20160426
  Receipt Date: 20160426
  Transmission Date: 20160815
  Serious: Yes (Other)
  Sender: FDA-Public Use
  Company Number: US-TEVA-654709USA

PATIENT
  Sex: Female

DRUGS (1)
  1. ZECUITY [Suspect]
     Active Substance: SUMATRIPTAN SUCCINATE
     Route: 062

REACTIONS (7)
  - Application site bruise [Unknown]
  - Sunburn [Unknown]
  - Application site erythema [Recovered/Resolved]
  - Application site pruritus [Unknown]
  - Application site paraesthesia [Recovered/Resolved]
  - Application site dryness [Unknown]
  - Product physical issue [Unknown]
